FAERS Safety Report 16335720 (Version 1)
Quarter: 2019Q2

REPORT INFORMATION
  Report Type: Spontaneous
  Country: FR (occurrence: FR)
  Receive Date: 20190521
  Receipt Date: 20190521
  Transmission Date: 20190711
  Serious: Yes (Death, Hospitalization, Other)
  Sender: FDA-Public Use
  Company Number: FR-ORION CORPORATION ORION PHARMA-19_00006169

PATIENT
  Age: 94 Year
  Sex: Male
  Weight: 74.6 kg

DRUGS (10)
  1. SPECIAFOLDINE [Concomitant]
     Active Substance: FOLIC ACID
     Route: 048
     Dates: start: 201812, end: 20190131
  2. XATRAL [Concomitant]
     Active Substance: ALFUZOSIN
     Route: 048
     Dates: end: 20190131
  3. DERMOVAL [Concomitant]
     Route: 061
     Dates: start: 201812
  4. AUGMENTIN [Concomitant]
     Active Substance: AMOXICILLIN\CLAVULANATE POTASSIUM
     Route: 048
     Dates: start: 20190129, end: 20190131
  5. COLCHICINE OPOCALCIUM [Interacting]
     Active Substance: COLCHICINE
     Indication: CHONDROCALCINOSIS
     Route: 048
     Dates: end: 20190131
  6. UVEDOSE [Concomitant]
     Active Substance: CHOLECALCIFEROL
     Route: 048
     Dates: start: 201812, end: 20190131
  7. COUMADINE [Concomitant]
     Active Substance: WARFARIN SODIUM
     Indication: ATRIAL FIBRILLATION
     Route: 048
     Dates: end: 20190131
  8. IMETH [Suspect]
     Active Substance: METHOTREXATE SODIUM
     Indication: PEMPHIGOID
     Route: 048
     Dates: start: 20181203, end: 20190128
  9. DECAPEPTYL [Concomitant]
     Route: 058
  10. LASILIX [Concomitant]
     Active Substance: FUROSEMIDE
     Route: 048

REACTIONS (6)
  - Influenza [Fatal]
  - Product use in unapproved indication [Unknown]
  - Neutropenia [Fatal]
  - Thrombocytopenia [Fatal]
  - Bone marrow failure [Fatal]
  - Drug interaction [Unknown]

NARRATIVE: CASE EVENT DATE: 20181203
